FAERS Safety Report 11089228 (Version 1)
Quarter: 2015Q2

REPORT INFORMATION
  Report Type: Spontaneous
  Country: US (occurrence: US)
  Receive Date: 20150505
  Receipt Date: 20150505
  Transmission Date: 20150821
  Serious: No
  Sender: FDA-Public Use
  Company Number: US-009507513-1504USA023896

PATIENT
  Sex: Female

DRUGS (1)
  1. GRASTEK [Suspect]
     Active Substance: PHLEUM PRATENSE POLLEN
     Dosage: STRENGTH?2800 BAU; DOSE: 2800 BAU
     Route: 060

REACTIONS (2)
  - Throat irritation [Unknown]
  - Oral pruritus [Unknown]
